FAERS Safety Report 10955058 (Version 1)
Quarter: 2015Q1

REPORT INFORMATION
  Report Type: Report from Study
  Country: VE (occurrence: VE)
  Receive Date: 20150325
  Receipt Date: 20150325
  Transmission Date: 20150721
  Serious: Yes (Hospitalization)
  Sender: FDA-Public Use
  Company Number: PHHY2015VE035268

PATIENT
  Sex: Female

DRUGS (4)
  1. LORATADINA [Concomitant]
     Active Substance: LORATADINE
     Indication: RESPIRATORY DISORDER
     Dosage: 10 MG, QD
     Route: 065
     Dates: start: 201410
  2. XOLAIR [Suspect]
     Active Substance: OMALIZUMAB
     Indication: BRONCHIAL DISORDER
     Dosage: 1200 MG, QMO
     Route: 065
  3. MIFLONIDE [Suspect]
     Active Substance: BUDESONIDE
     Indication: RESPIRATORY DISORDER
     Dosage: 800 UG, QD
     Route: 055
  4. FORADIL [Suspect]
     Active Substance: FORMOTEROL FUMARATE
     Indication: RESPIRATORY DISORDER
     Dosage: 800 UG, QD
     Route: 055

REACTIONS (1)
  - Menstrual disorder [Recovering/Resolving]
